FAERS Safety Report 25579142 (Version 4)
Quarter: 2025Q4

REPORT INFORMATION
  Report Type: Report from Study
  Country: JP (occurrence: JP)
  Receive Date: 20250718
  Receipt Date: 20251217
  Transmission Date: 20260118
  Serious: Yes (Other)
  Sender: PFIZER
  Company Number: JP-ASTELLAS-2022JP018000

PATIENT
  Age: 83 Year
  Sex: Male
  Weight: 58 kg

DRUGS (14)
  1. PADCEV [Suspect]
     Active Substance: ENFORTUMAB VEDOTIN-EJFV
     Indication: Transitional cell carcinoma
     Dosage: 1.25 MG/KG
     Route: 041
     Dates: start: 20220112, end: 20220224
  2. PADCEV [Suspect]
     Active Substance: ENFORTUMAB VEDOTIN-EJFV
     Dosage: 1.00 MG/KG
     Route: 041
     Dates: start: 20220310, end: 20220421
  3. PADCEV [Suspect]
     Active Substance: ENFORTUMAB VEDOTIN-EJFV
     Dosage: 1.00 MG/KG
     Route: 041
     Dates: start: 20220512, end: 20220623
  4. PADCEV [Suspect]
     Active Substance: ENFORTUMAB VEDOTIN-EJFV
     Dosage: 0.75 MG/KG
     Route: 041
     Dates: start: 20220707, end: 20220721
  5. PADCEV [Suspect]
     Active Substance: ENFORTUMAB VEDOTIN-EJFV
     Dosage: 0.75 MG/KG
     Route: 041
     Dates: start: 20220818, end: 20220901
  6. PADCEV [Suspect]
     Active Substance: ENFORTUMAB VEDOTIN-EJFV
     Dosage: 0.75 MG/KG
     Route: 041
     Dates: start: 20220922, end: 20221006
  7. PADCEV [Suspect]
     Active Substance: ENFORTUMAB VEDOTIN-EJFV
     Dosage: 0.75 MG/KG
     Route: 041
     Dates: start: 20221027, end: 20221027
  8. PADCEV [Suspect]
     Active Substance: ENFORTUMAB VEDOTIN-EJFV
     Dosage: 0.75 MG/KG
     Route: 041
     Dates: start: 20221110, end: 20221110
  9. PADCEV [Suspect]
     Active Substance: ENFORTUMAB VEDOTIN-EJFV
     Dosage: 0.75 MG/KG
     Route: 041
     Dates: start: 20221201
  10. GEMCITABINE HYDROCHLORIDE [Suspect]
     Active Substance: GEMCITABINE HYDROCHLORIDE
     Indication: Transitional cell carcinoma
     Dosage: UNK
     Route: 065
     Dates: start: 20200304, end: 20210119
  11. CARBOPLATIN [Suspect]
     Active Substance: CARBOPLATIN
     Indication: Transitional cell carcinoma
     Dosage: UNK
     Route: 065
     Dates: start: 20200304, end: 20210119
  12. URSODIOL [Concomitant]
     Active Substance: URSODIOL
     Indication: Hepatic function abnormal
     Dosage: 100 MG, 3X/DAY
     Route: 048
     Dates: start: 20200512
  13. POLAPREZINC [Concomitant]
     Active Substance: POLAPREZINC
     Indication: Taste disorder
     Dosage: 75 MG, 2X/DAY
     Route: 048
     Dates: start: 20220217, end: 20221215
  14. ZINC [Concomitant]
     Active Substance: ZINC
     Indication: Taste disorder
     Dosage: UNK
     Dates: start: 20220209

REACTIONS (6)
  - Pemphigoid [Recovering/Resolving]
  - Neuropathy peripheral [Not Recovered/Not Resolved]
  - Hyperglycaemia [Recovered/Resolved]
  - Pruritus [Unknown]
  - Taste disorder [Recovered/Resolved]
  - Inappropriate schedule of product administration [Unknown]

NARRATIVE: CASE EVENT DATE: 20220209
